FAERS Safety Report 8267601-4 (Version None)
Quarter: 2012Q2

REPORT INFORMATION
  Report Type: 
  Country: None (occurrence: None)
  Receive Date: 20120409
  Receipt Date: 20120329
  Transmission Date: 20120825
  Serious: Yes (Hospitalization, Other)
  Sender: FDA-Public Use
  Company Number: US-ELI_LILLY_AND_COMPANY-US201201008101

PATIENT
  Age: 76 Year
  Sex: Female
  Weight: 48 kg

DRUGS (6)
  1. FORTEO [Suspect]
     Dosage: 20 UG, QD
     Dates: start: 20120201
  2. FORTEO [Suspect]
     Indication: OSTEOPOROSIS
     Dosage: 20 UG, QD
     Route: 065
  3. PLAQUENIL [Concomitant]
     Dosage: UNK, UNKNOWN
     Route: 065
  4. PREDNISONE [Concomitant]
     Dosage: 5 MG, UNKNOWN
     Route: 065
  5. NORVASC [Concomitant]
     Dosage: UNK, UNKNOWN
     Route: 065
  6. ANALGESICS [Concomitant]
     Indication: PAIN
     Dosage: UNK, UNKNOWN
     Route: 065

REACTIONS (6)
  - SPINAL FRACTURE [None]
  - PELVIC FRACTURE [None]
  - FALL [None]
  - PAIN [None]
  - ASTHENIA [None]
  - INFLUENZA LIKE ILLNESS [None]
